FAERS Safety Report 19898590 (Version 1)
Quarter: 2021Q3

REPORT INFORMATION
  Report Type: Spontaneous
  Country: GB (occurrence: GB)
  Receive Date: 20210929
  Receipt Date: 20210929
  Transmission Date: 20211014
  Serious: Yes (Other)
  Sender: FDA-Public Use
  Company Number: GB-ABBVIE-21K-167-4096144-00

PATIENT
  Age: 12 Year
  Sex: Male
  Weight: 48.7 kg

DRUGS (2)
  1. EPILIM [Suspect]
     Active Substance: VALPROATE SODIUM
     Indication: GENERALISED TONIC-CLONIC SEIZURE
     Route: 048
     Dates: start: 201806, end: 20180816
  2. EPILIM [Suspect]
     Active Substance: VALPROATE SODIUM
     Dosage: 600 MG MORNING AND 400 MG AT NIGHT
     Route: 048
     Dates: start: 20180816, end: 20180820

REACTIONS (6)
  - Coagulopathy [Unknown]
  - Decreased appetite [Recovered/Resolved]
  - Somnolence [Unknown]
  - Lip blister [Recovered/Resolved]
  - Liver function test abnormal [Recovering/Resolving]
  - Epistaxis [Unknown]

NARRATIVE: CASE EVENT DATE: 20180820
